FAERS Safety Report 10096131 (Version 4)
Quarter: 2014Q4

REPORT INFORMATION
  Report Type: Spontaneous
  Country: US (occurrence: US)
  Receive Date: 20140422
  Receipt Date: 20141110
  Transmission Date: 20150528
  Serious: Yes (Other)
  Sender: FDA-Public Use
  Company Number: PHEH2014US007654

PATIENT
  Sex: Female

DRUGS (20)
  1. VITAMIN D [Concomitant]
     Active Substance: CHOLECALCIFEROL
     Dosage: UNK
  2. MYRBETRIQ [Suspect]
     Active Substance: MIRABEGRON
     Indication: HYPERTONIC BLADDER
     Dosage: UNK
     Route: 065
  3. DIGOXIN. [Concomitant]
     Active Substance: DIGOXIN
     Dosage: UNK
  4. ISOSORBIDE [Concomitant]
     Active Substance: ISOSORBIDE
     Dosage: UNK
  5. RECLAST [Suspect]
     Active Substance: ZOLEDRONIC ACID
     Indication: OSTEITIS DEFORMANS
     Dosage: ONCE YEAR
     Route: 042
     Dates: start: 20120312
  6. AMLODIPINE BESILATE [Concomitant]
     Active Substance: AMLODIPINE BESYLATE
     Dosage: 2.5 MG, QD
     Route: 048
  7. DONEPEZIL [Concomitant]
     Active Substance: DONEPEZIL
     Indication: DEMENTIA
     Dosage: 23 MG, UNK
     Route: 048
  8. NEXIUM [Concomitant]
     Active Substance: ESOMEPRAZOLE MAGNESIUM
     Dosage: UNK
  9. HYDROCODONE [Concomitant]
     Active Substance: HYDROCODONE
     Dosage: UNK
     Route: 048
  10. VESICARE [Concomitant]
     Active Substance: SOLIFENACIN SUCCINATE
     Dosage: UNK
  11. AGGRENOX [Concomitant]
     Active Substance: ASPIRIN\DIPYRIDAMOLE
     Dosage: 25 MG, QD
     Route: 048
  12. PREVACID [Concomitant]
     Active Substance: LANSOPRAZOLE
     Dosage: UNK
  13. TEMAZEPAM. [Suspect]
     Active Substance: TEMAZEPAM
     Indication: SLEEP DISORDER
     Dosage: UNK
     Route: 065
  14. CARVEDILOL. [Concomitant]
     Active Substance: CARVEDILOL
     Dosage: 25 MG, QD
     Route: 048
  15. LISINOPRIL. [Concomitant]
     Active Substance: LISINOPRIL
     Dosage: 4 MG, QD
     Route: 048
  16. SIMVASTATIN. [Concomitant]
     Active Substance: SIMVASTATIN
     Dosage: 20 MG, QD
     Route: 048
  17. ISOSORBIDE MONONITRATE. [Concomitant]
     Active Substance: ISOSORBIDE MONONITRATE
     Dosage: 30 MG, QD
     Route: 048
  18. FLUOXETINE [Concomitant]
     Active Substance: FLUOXETINE\FLUOXETINE HYDROCHLORIDE
     Dosage: 4 MG, QD
     Route: 048
  19. RECLAST [Suspect]
     Active Substance: ZOLEDRONIC ACID
     Indication: OSTEOPOROSIS
     Dosage: ONCE YEAR
     Route: 042
     Dates: start: 20101109
  20. CALCIUM [Concomitant]
     Active Substance: CALCIUM
     Dosage: UNK

REACTIONS (12)
  - Renal impairment [Unknown]
  - Gingival pain [Unknown]
  - Hyperhidrosis [Unknown]
  - Skeletal injury [Unknown]
  - Jaw disorder [Unknown]
  - Dental caries [Unknown]
  - Tooth loss [Unknown]
  - Mouth injury [Unknown]
  - Device failure [Unknown]
  - Gingival disorder [Unknown]
  - Abnormal dreams [Unknown]
  - Bone loss [Unknown]
